FAERS Safety Report 13130729 (Version 1)
Quarter: 2017Q1

REPORT INFORMATION
  Report Type: Spontaneous
  Country: US (occurrence: US)
  Receive Date: 20170119
  Receipt Date: 20170119
  Transmission Date: 20170428
  Serious: Yes (Hospitalization, Other)
  Sender: FDA-Public Use
  Company Number: US-JAZZ-2017-US-000497

PATIENT
  Age: 29 Year
  Sex: Male

DRUGS (1)
  1. XYREM [Suspect]
     Active Substance: SODIUM OXYBATE
     Indication: PRODUCT USED FOR UNKNOWN INDICATION
     Dosage: UNK
     Route: 048
     Dates: start: 20161214

REACTIONS (11)
  - Suicide attempt [Unknown]
  - Pupillary light reflex tests abnormal [Recovered/Resolved]
  - Diarrhoea [Recovered/Resolved]
  - Bradycardia [Recovered/Resolved]
  - Electrolyte imbalance [Recovered/Resolved]
  - Anal incontinence [Recovered/Resolved]
  - Hypertension [Recovered/Resolved]
  - Coma [Recovered/Resolved]
  - Chest pain [Recovered/Resolved]
  - Blood creatine phosphokinase increased [Recovered/Resolved]
  - Urinary incontinence [Recovered/Resolved]
